FAERS Safety Report 5514538-7 (Version None)
Quarter: 2007Q4

REPORT INFORMATION
  Report Type: 
  Country: None (occurrence: None)
  Receive Date: 20071113
  Receipt Date: 20071107
  Transmission Date: 20080405
  Serious: No
  Sender: FDA-Public Use
  Company Number: A0683947A

PATIENT
  Age: 36 Year
  Sex: Female
  Weight: 77.3 kg

DRUGS (3)
  1. LAMICTAL [Suspect]
     Indication: BIPOLAR DISORDER
     Dosage: 25MG UNKNOWN
     Route: 048
  2. XANAX [Concomitant]
  3. CYMBALTA [Concomitant]

REACTIONS (1)
  - MOUTH ULCERATION [None]
